FAERS Safety Report 25084465 (Version 1)
Quarter: 2025Q1

REPORT INFORMATION
  Report Type: Spontaneous
  Country: GB (occurrence: GB)
  Receive Date: 20250317
  Receipt Date: 20250317
  Transmission Date: 20250408
  Serious: Yes (Other)
  Sender: AUROBINDO
  Company Number: GB-MHRA-TPP19783152C3776539YC1740758101452

PATIENT
  Age: 83 Year
  Sex: Male
  Weight: 80 kg

DRUGS (13)
  1. MEROPENEM [Suspect]
     Active Substance: MEROPENEM
     Indication: Ill-defined disorder
     Route: 065
     Dates: start: 20250212
  2. COLISTIMETHATE SODIUM [Interacting]
     Active Substance: COLISTIMETHATE SODIUM
     Indication: Product used for unknown indication
     Route: 065
  3. PREDNISOLONE [Concomitant]
     Active Substance: PREDNISOLONE
     Indication: Ill-defined disorder
     Route: 065
     Dates: start: 20250110
  4. Aymes shake [Concomitant]
     Indication: Ill-defined disorder
     Route: 065
     Dates: start: 20241220
  5. FERROUS SULFATE [Concomitant]
     Active Substance: FERROUS SULFATE
     Indication: Ill-defined disorder
     Dosage: 1 DOSAGE FORM, ONCE A DAY
     Route: 065
     Dates: start: 20250107
  6. COTRIMOXAZOLE [Concomitant]
     Active Substance: SULFAMETHOXAZOLE\TRIMETHOPRIM
     Indication: Ill-defined disorder
     Dosage: 1 DOSAGE FORM, TWO TIMES A DAY
     Route: 065
     Dates: start: 20250212
  7. POLYETHYLENE GLYCOL 3350\POTASSIUM CHLORIDE\SODIUM BICARBONATE\SODIUM [Concomitant]
     Active Substance: POLYETHYLENE GLYCOL 3350\POTASSIUM CHLORIDE\SODIUM BICARBONATE\SODIUM CHLORIDE
     Indication: Ill-defined disorder
     Dosage: 1 SACHET, 3 TIMES A DAY
     Route: 065
     Dates: start: 20250212
  8. ALBUTEROL [Concomitant]
     Active Substance: ALBUTEROL
     Indication: Ill-defined disorder
     Route: 065
     Dates: start: 20250212
  9. CARBOCYSTEINE [Concomitant]
     Active Substance: CARBOCYSTEINE
     Indication: Ill-defined disorder
     Dosage: 2 DOSAGE FORM, 3 TIMES A DAY (THEN REDUCE TO 2 CAP)
     Route: 065
     Dates: start: 20231212
  10. BECLOMETHASONE\FORMOTEROL [Concomitant]
     Active Substance: BECLOMETHASONE\FORMOTEROL
     Indication: Ill-defined disorder
     Dosage: 2 DOSAGE FORM, TWO TIMES A DAY
     Route: 065
     Dates: start: 20231212
  11. LANSOPRAZOLE [Concomitant]
     Active Substance: LANSOPRAZOLE
     Indication: Ill-defined disorder
     Dosage: 1 DOSAGE FORM, ONCE A DAY
     Route: 065
     Dates: start: 20240904
  12. NAPROXEN [Concomitant]
     Active Substance: NAPROXEN
     Indication: Ill-defined disorder
     Dosage: 1 DOSAGE FORM, TWO TIMES A DAY
     Route: 065
     Dates: start: 20240904
  13. ALBUTEROL [Concomitant]
     Active Substance: ALBUTEROL
     Indication: Ill-defined disorder
     Route: 065
     Dates: start: 20241112

REACTIONS (3)
  - Eosinophilia [Unknown]
  - Drug interaction [Unknown]
  - Rash [Unknown]

NARRATIVE: CASE EVENT DATE: 20250212
